FAERS Safety Report 6430360-1 (Version None)
Quarter: 2009Q4

REPORT INFORMATION
  Report Type: 
  Country: None (occurrence: None)
  Receive Date: 20091106
  Receipt Date: 20091006
  Transmission Date: 20100525
  Serious: No
  Sender: FDA-Public Use
  Company Number: US-BAYER-200915390BCC

PATIENT
  Age: 81 Year
  Sex: Female
  Weight: 52 kg

DRUGS (6)
  1. ALEVE (CAPLET) [Suspect]
     Indication: BACK PAIN
     Dosage: TOTAL DAILY DOSE: 440 MG  UNIT DOSE: 220 MG
     Route: 048
  2. NEXIUM [Concomitant]
     Route: 065
  3. CARAFATE [Concomitant]
     Route: 065
  4. NEURONTIN [Concomitant]
     Route: 065
  5. ESTER-C [Concomitant]
     Route: 065
  6. TWINLAB VITAMIN D3 [Concomitant]
     Route: 065

REACTIONS (1)
  - ABDOMINAL PAIN UPPER [None]
